FAERS Safety Report 17812695 (Version 2)
Quarter: 2020Q2

REPORT INFORMATION
  Report Type: Spontaneous
  Country: IT (occurrence: IT)
  Receive Date: 20200521
  Receipt Date: 20200522
  Transmission Date: 20200714
  Serious: Yes (Other)
  Sender: FDA-Public Use
  Company Number: IT-SA-2020SA125642

PATIENT
  Age: 19 Year
  Sex: Female

DRUGS (2)
  1. FEXALLEGRA [Suspect]
     Active Substance: FEXOFENADINE HYDROCHLORIDE
     Indication: HYPERSENSITIVITY
     Dosage: 120 MG, 1X
     Route: 048
  2. BRONCOVALEAS [SALBUTAMOL] [Concomitant]
     Indication: ASTHMA
     Dosage: UNK UNK, PRN

REACTIONS (6)
  - Syncope [Recovered/Resolved]
  - Hypotension [Recovered/Resolved]
  - Tachycardia [Recovered/Resolved]
  - Nausea [Recovered/Resolved]
  - Dry mouth [Recovered/Resolved]
  - Dizziness [Recovered/Resolved]
